FAERS Safety Report 5356636-7 (Version None)
Quarter: 2007Q2

REPORT INFORMATION
  Report Type: 
  Country: None (occurrence: None)
  Receive Date: 20070614
  Receipt Date: 20070612
  Transmission Date: 20071010
  Serious: Yes (Hospitalization)
  Sender: FDA-Public Use
  Company Number: JP-BAYER-200713143GDS

PATIENT
  Age: 47 Year
  Sex: Male

DRUGS (3)
  1. ASPIRIN [Suspect]
     Indication: MYOCARDIAL INFARCTION
     Dates: start: 20060301
  2. TICLOPIDINE HCL [Suspect]
     Indication: MYOCARDIAL INFARCTION
     Dates: start: 20060301
  3. AMIODARONE HCL [Suspect]
     Indication: DRUG USE FOR UNKNOWN INDICATION

REACTIONS (3)
  - PULMONARY ALVEOLAR HAEMORRHAGE [None]
  - VENTRICULAR EXTRASYSTOLES [None]
  - VENTRICULAR TACHYCARDIA [None]
